FAERS Safety Report 25825996 (Version 1)
Quarter: 2025Q3

REPORT INFORMATION
  Report Type: Spontaneous
  Country: IL (occurrence: IL)
  Receive Date: 20250919
  Receipt Date: 20250919
  Transmission Date: 20251020
  Serious: Yes (Other)
  Sender: ELI LILLY AND COMPANY
  Company Number: IL-ELI_LILLY_AND_COMPANY-IL202509008214

PATIENT
  Age: 43 Year
  Sex: Male

DRUGS (1)
  1. MOUNJARO [Suspect]
     Active Substance: TIRZEPATIDE
     Indication: Product used for unknown indication
     Route: 065
     Dates: start: 202508

REACTIONS (3)
  - Atrial fibrillation [Unknown]
  - Energy increased [Unknown]
  - Off label use [Unknown]

NARRATIVE: CASE EVENT DATE: 20250801
